FAERS Safety Report 6204694-X (Version None)
Quarter: 2009Q2

REPORT INFORMATION
  Report Type: 
  Country: None (occurrence: None)
  Receive Date: 20090527
  Receipt Date: 20090519
  Transmission Date: 20091009
  Serious: Yes (Hospitalization, Other)
  Sender: FDA-Public Use
  Company Number: PHHY2009BR12622

PATIENT
  Sex: Female
  Weight: 92.6 kg

DRUGS (6)
  1. TRILEPTAL [Suspect]
     Indication: CONVULSION
     Dosage: 600 MG, TID
     Route: 048
     Dates: start: 20010101
  2. PONDERAL [Concomitant]
     Dosage: 1 TABLET IN THE MORNING
     Route: 048
     Dates: start: 20090101
  3. TOPAMAX [Concomitant]
     Indication: DEPRESSION
     Dosage: 50 MG, BID, IN THE MORNING AND AT NIGHT
     Route: 048
     Dates: start: 20090101
  4. TOPAMAX [Concomitant]
     Indication: ANXIETY
  5. OMEPRAZOLE [Concomitant]
     Indication: ABDOMINAL PAIN UPPER
     Dosage: 20 MG, BID, IN THE MORNING AND AT NIGHT
     Route: 048
     Dates: start: 19990101
  6. FRISIUM [Concomitant]
     Indication: DEPRESSION
     Dosage: 10MG IN THE MORNING AND 20MG AT NIGHT
     Route: 048

REACTIONS (8)
  - ANOREXIA [None]
  - DEPRESSION [None]
  - INCREASED APPETITE [None]
  - MEMORY IMPAIRMENT [None]
  - NERVOUSNESS [None]
  - PALLOR [None]
  - PETIT MAL EPILEPSY [None]
  - WEIGHT DECREASED [None]
